FAERS Safety Report 9181048 (Version 3)
Quarter: 2013Q3

REPORT INFORMATION
  Report Type: Spontaneous
  Country: US (occurrence: US)
  Receive Date: 20130322
  Receipt Date: 20130911
  Transmission Date: 20140515
  Serious: Yes (Death)
  Sender: FDA-Public Use
  Company Number: US-BAYER-2013-032682

PATIENT
  Age: 33 Year
  Sex: Female
  Weight: 60.09 kg

DRUGS (4)
  1. GIANVI [Suspect]
     Indication: CONTRACEPTION
     Dosage: UNK
     Dates: start: 201108, end: 201205
  2. BEYAZ [Suspect]
     Indication: CONTRACEPTION
     Dosage: UNK
     Dates: start: 201108
  3. TYLENOL [PARACETAMOL] [Concomitant]
     Indication: MIGRAINE
  4. XANAX [Concomitant]

REACTIONS (6)
  - Pulmonary embolism [Fatal]
  - Pulmonary infarction [Fatal]
  - Emotional distress [None]
  - Injury [Fatal]
  - Anxiety [None]
  - Pain [Fatal]
